FAERS Safety Report 7050231-X (Version None)
Quarter: 2010Q4

REPORT INFORMATION
  Report Type: 
  Country: None (occurrence: None)
  Receive Date: 20101018
  Receipt Date: 20101008
  Transmission Date: 20110411
  Serious: Yes (Other)
  Sender: FDA-Public Use
  Company Number: US-US-EMD SERONO, INC.-7014247

PATIENT
  Sex: Female
  Weight: 107 kg

DRUGS (2)
  1. REBIF [Suspect]
     Indication: MULTIPLE SCLEROSIS
     Route: 058
     Dates: start: 20030428
  2. HUMALOG MIX 50/50 [Concomitant]
     Indication: DIABETES MELLITUS
     Dates: start: 20080101

REACTIONS (3)
  - CATARACT [None]
  - CORONARY ARTERY OCCLUSION [None]
  - HYPERTENSION [None]
